FAERS Safety Report 5467693-1 (Version None)
Quarter: 2007Q3

REPORT INFORMATION
  Report Type: 
  Country: None (occurrence: None)
  Receive Date: 20070925
  Receipt Date: 20070917
  Transmission Date: 20080115
  Serious: No
  Sender: FDA-Public Use
  Company Number: US-ELI_LILLY_AND_COMPANY-US200705003518

PATIENT
  Age: 62 Year
  Sex: Female
  Weight: 114.29 kg

DRUGS (6)
  1. BYETTA [Suspect]
     Indication: TYPE 1 DIABETES MELLITUS
     Dosage: 10 UG, 2/D
     Route: 058
     Dates: start: 20070912
  2. BYETTA [Suspect]
     Dosage: 5 UG, 2/D
     Route: 058
     Dates: start: 20070101
  3. HUMALOG [Concomitant]
     Indication: DIABETES MELLITUS
     Dosage: 30 U, UNK
     Route: 058
  4. LANTUS [Concomitant]
     Indication: DIABETES MELLITUS
     Dosage: 98 U, UNKNOWN
     Route: 058
  5. DIURETICS [Concomitant]
     Dosage: UNK, UNKNOWN
     Route: 048
  6. ANTIHYPERTENSIVE AGENT [Concomitant]
     Dosage: UNK, UNKNOWN
     Route: 048

REACTIONS (3)
  - CATARACT [None]
  - EARLY SATIETY [None]
  - INCORRECT DOSE ADMINISTERED [None]
